FAERS Safety Report 8300614-2 (Version None)
Quarter: 2012Q2

REPORT INFORMATION
  Report Type: 
  Country: None (occurrence: None)
  Receive Date: 20120420
  Receipt Date: 20120410
  Transmission Date: 20120825
  Serious: Yes (Hospitalization)
  Sender: FDA-Public Use
  Company Number: PHHY2012KR004105

PATIENT
  Sex: Male
  Weight: 64 kg

DRUGS (1)
  1. EXJADE [Suspect]
     Indication: IRON OVERLOAD
     Route: 048
     Dates: start: 20090114

REACTIONS (4)
  - DIARRHOEA [None]
  - PYREXIA [None]
  - SKIN EXFOLIATION [None]
  - SERUM FERRITIN ABNORMAL [None]
